FAERS Safety Report 19824112 (Version 2)
Quarter: 2021Q3

REPORT INFORMATION
  Report Type: Spontaneous
  Country: IT (occurrence: IT)
  Receive Date: 20210913
  Receipt Date: 20210916
  Transmission Date: 20211014
  Serious: Yes (Other)
  Sender: FDA-Public Use
  Company Number: IT-MYLANLABS-2021M1061148

PATIENT
  Age: 3 Year
  Sex: Male
  Weight: 14 kg

DRUGS (1)
  1. CETIRIZINE [Suspect]
     Active Substance: CETIRIZINE HYDROCHLORIDE
     Indication: HYPERSENSITIVITY
     Dosage: 8 MILLIGRAM, QD
     Route: 048

REACTIONS (4)
  - Tic [Unknown]
  - Increased appetite [Unknown]
  - Dystonia [Unknown]
  - Aggression [Unknown]

NARRATIVE: CASE EVENT DATE: 20210730
